FAERS Safety Report 7482866-4 (Version None)
Quarter: 2011Q2

REPORT INFORMATION
  Report Type: 
  Country: None (occurrence: None)
  Receive Date: 20110516
  Receipt Date: 20110510
  Transmission Date: 20111010
  Serious: Yes (Other)
  Sender: FDA-Public Use
  Company Number: US-PFIZER INC-2011100763

PATIENT
  Sex: Female
  Weight: 78.912 kg

DRUGS (8)
  1. FLEXERIL [Concomitant]
     Dosage: 10 MG, 3X/DAY
  2. LYRICA [Suspect]
     Indication: INTERVERTEBRAL DISC DEGENERATION
  3. FENOFIBRATE [Concomitant]
     Indication: BLOOD CHOLESTEROL INCREASED
     Dosage: 134 MG, 1X/DAY
  4. DEXLANSOPRAZOLE [Concomitant]
     Indication: HYPERCHLORHYDRIA
     Dosage: 60 MG, 1X/DAY
  5. SIMVASTATIN [Concomitant]
     Indication: BLOOD CHOLESTEROL INCREASED
     Dosage: 40 MG, UNK
  6. LYRICA [Suspect]
     Indication: FIBROMYALGIA
     Dosage: 300 MG, 2X/DAY
     Route: 048
     Dates: start: 20090101
  7. MILNACIPRAN [Concomitant]
     Dosage: UNK
  8. CELEBREX [Concomitant]
     Dosage: 200 MG, 2X/DAY

REACTIONS (4)
  - OEDEMA PERIPHERAL [None]
  - BLOOD CHOLESTEROL INCREASED [None]
  - PAIN IN EXTREMITY [None]
  - WEIGHT INCREASED [None]
